FAERS Safety Report 24092596 (Version 1)
Quarter: 2024Q3

REPORT INFORMATION
  Report Type: Spontaneous
  Country: US (occurrence: US)
  Receive Date: 20240715
  Receipt Date: 20240715
  Transmission Date: 20241017
  Serious: No
  Sender: PERRIGO
  Company Number: US-PERRIGO-24US005708

PATIENT
  Age: 53 Year
  Sex: Male
  Weight: 77.098 kg

DRUGS (7)
  1. MINOXIDIL [Suspect]
     Active Substance: MINOXIDIL
     Indication: Hair growth abnormal
     Dosage: 1 ML, BID
     Route: 061
     Dates: start: 202304, end: 202403
  2. MINOXIDIL [Suspect]
     Active Substance: MINOXIDIL
     Dosage: 1.5 ML, QD
     Route: 061
     Dates: start: 202403
  3. MINOXIDIL [Suspect]
     Active Substance: MINOXIDIL
     Dosage: UNKNOWN, QHS
     Route: 061
     Dates: start: 202304
  4. MINOXIDIL [Suspect]
     Active Substance: MINOXIDIL
     Dosage: UNK, INTERMITTENTLY
     Route: 061
  5. LIPITOR [Concomitant]
     Active Substance: ATORVASTATIN CALCIUM
     Indication: Blood cholesterol increased
     Dosage: UNK
     Route: 065
  6. FLONASE [Concomitant]
     Active Substance: FLUTICASONE PROPIONATE
     Indication: Seasonal allergy
     Dosage: UNK
     Route: 065
  7. ZYRTEC [Concomitant]
     Active Substance: CETIRIZINE HYDROCHLORIDE
     Indication: Seasonal allergy
     Dosage: UNK
     Route: 065

REACTIONS (9)
  - Dry skin [Recovered/Resolved]
  - Hand dermatitis [Not Recovered/Not Resolved]
  - Genital lesion [Not Recovered/Not Resolved]
  - Penile discomfort [Not Recovered/Not Resolved]
  - Drug ineffective [Unknown]
  - Accidental exposure to product [Unknown]
  - Product administered at inappropriate site [Unknown]
  - Incorrect dose administered [Unknown]
  - Inappropriate schedule of product administration [Unknown]

NARRATIVE: CASE EVENT DATE: 20230401
